FAERS Safety Report 16999723 (Version 12)
Quarter: 2022Q3

REPORT INFORMATION
  Report Type: Report from Study
  Country: CA (occurrence: CA)
  Receive Date: 20191105
  Receipt Date: 20220926
  Transmission Date: 20221026
  Serious: Yes (Other)
  Sender: FDA-Public Use
  Company Number: PHHY2018CA048986

PATIENT
  Sex: Male

DRUGS (9)
  1. ILARIS [Suspect]
     Active Substance: CANAKINUMAB
     Indication: Cryopyrin associated periodic syndrome
     Dosage: 150 MG, EVERY 8 WEEKS
     Route: 058
     Dates: start: 20180129
  2. ILARIS [Suspect]
     Active Substance: CANAKINUMAB
     Dosage: 150 MG, EVERY 8 WEEKS
     Route: 058
     Dates: start: 20180518
  3. ILARIS [Suspect]
     Active Substance: CANAKINUMAB
     Dosage: 150 MG, EVERY 8 WEEKS
     Route: 058
     Dates: start: 20181108
  4. ILARIS [Suspect]
     Active Substance: CANAKINUMAB
     Dosage: 150 MG, EVERY 8 WEEKS
     Route: 058
     Dates: start: 20190103
  5. ILARIS [Suspect]
     Active Substance: CANAKINUMAB
     Dosage: 150 MG, EVERY 8 WEEKS
     Route: 058
     Dates: start: 20190829
  6. ILARIS [Suspect]
     Active Substance: CANAKINUMAB
     Dosage: 150 MG, EVERY 8 WEEKS
     Route: 058
     Dates: start: 20200122
  7. ILARIS [Suspect]
     Active Substance: CANAKINUMAB
     Dosage: 150 MG, EVERY 8 WEEKS
     Route: 058
     Dates: start: 20200325
  8. ILARIS [Suspect]
     Active Substance: CANAKINUMAB
     Dosage: 150 MG, EVERY 8 WEEKS
     Route: 058
     Dates: start: 20211125
  9. ILARIS [Suspect]
     Active Substance: CANAKINUMAB
     Dosage: 150 MG, EVERY 8 WEEKS
     Route: 058

REACTIONS (25)
  - Lower respiratory tract infection [Unknown]
  - Productive cough [Unknown]
  - Pyrexia [Recovered/Resolved]
  - Cryopyrin associated periodic syndrome [Unknown]
  - Condition aggravated [Recovering/Resolving]
  - Sneezing [Unknown]
  - Breath odour [Unknown]
  - Tinnitus [Unknown]
  - Nasal congestion [Unknown]
  - Rhinorrhoea [Unknown]
  - Blood pressure abnormal [Unknown]
  - Oropharyngeal pain [Unknown]
  - Dysphonia [Unknown]
  - Temperature intolerance [Unknown]
  - Ocular hyperaemia [Unknown]
  - Eye irritation [Recovered/Resolved]
  - Illness [Unknown]
  - Blister [Unknown]
  - Rash [Recovered/Resolved]
  - Erythema [Unknown]
  - Skin swelling [Unknown]
  - Fatigue [Unknown]
  - Platelet count decreased [Unknown]
  - Pain [Unknown]
  - Pain in extremity [Unknown]

NARRATIVE: CASE EVENT DATE: 20180101
